FAERS Safety Report 13028840 (Version 2)
Quarter: 2017Q1

REPORT INFORMATION
  Report Type: Spontaneous
  Country: US (occurrence: US)
  Receive Date: 20161214
  Receipt Date: 20170303
  Transmission Date: 20170428
  Serious: Yes (Hospitalization, Other)
  Sender: FDA-Public Use
  Company Number: US-ASTRAZENECA-2016SF29860

PATIENT
  Age: 65 Year
  Sex: Female
  Weight: 94.8 kg

DRUGS (13)
  1. OXYCODONE [Concomitant]
     Active Substance: OXYCODONE
     Indication: PAIN
     Route: 048
  2. TYLENOL [Concomitant]
     Active Substance: ACETAMINOPHEN
     Indication: PYREXIA
     Route: 048
  3. LYNPARZA [Suspect]
     Active Substance: OLAPARIB
     Indication: OVARIAN CANCER
     Route: 048
     Dates: start: 20160609, end: 201608
  4. XANAX [Suspect]
     Active Substance: ALPRAZOLAM
     Route: 048
  5. COMPAZINE [Concomitant]
     Active Substance: PROCHLORPERAZINE MALEATE
     Indication: NAUSEA
     Route: 048
  6. LYRICA [Suspect]
     Active Substance: PREGABALIN
     Route: 048
     Dates: start: 20161116
  7. SARNA [Concomitant]
     Indication: PRURITUS
     Dosage: THREE TIMES A DAY
     Route: 061
  8. NORVASC [Concomitant]
     Active Substance: AMLODIPINE BESYLATE
     Route: 048
  9. ZOFRAN [Concomitant]
     Active Substance: ONDANSETRON HYDROCHLORIDE
     Indication: NAUSEA
     Route: 048
  10. DOXIL [Concomitant]
     Active Substance: DOXORUBICIN HYDROCHLORIDE
     Dosage: TAKE ONE WITH EVERY OXYCODONE
     Route: 048
  11. COMPAZINE [Concomitant]
     Active Substance: PROCHLORPERAZINE MALEATE
     Indication: VOMITING
     Route: 048
  12. ZOFRAN [Concomitant]
     Active Substance: ONDANSETRON HYDROCHLORIDE
     Indication: VOMITING
     Route: 048
  13. SENOKOT [Concomitant]
     Active Substance: SENNOSIDES
     Dosage: TAKE ONE WITH EVERY OXYCODONE
     Route: 048

REACTIONS (19)
  - Obesity [Unknown]
  - Electrocardiogram QT prolonged [Unknown]
  - Normochromic normocytic anaemia [Unknown]
  - Nasopharyngitis [Unknown]
  - Haemolytic anaemia [Unknown]
  - Haemoglobinuria [Unknown]
  - Laryngitis [Unknown]
  - Pyrexia [Unknown]
  - Drug hypersensitivity [Unknown]
  - Pruritus [Unknown]
  - Tachycardia [Unknown]
  - Vaginal haemorrhage [Recovered/Resolved]
  - Anxiety [Unknown]
  - Depression [Unknown]
  - Neuropathy peripheral [Unknown]
  - Retinal tear [Unknown]
  - Immunodeficiency [Unknown]
  - Arthralgia [Unknown]
  - Acute kidney injury [Unknown]

NARRATIVE: CASE EVENT DATE: 201607
